FAERS Safety Report 6269938-7 (Version None)
Quarter: 2009Q3

REPORT INFORMATION
  Report Type: 
  Country: None (occurrence: None)
  Receive Date: 20090714
  Receipt Date: 20090630
  Transmission Date: 20100115
  Serious: Yes (Other)
  Sender: FDA-Public Use
  Company Number: 2009001950

PATIENT
  Age: 60 Year
  Sex: Female

DRUGS (1)
  1. TARCEVA [Suspect]
     Indication: NON-SMALL CELL LUNG CANCER
     Dosage: (150 MG, QD), ORAL
     Route: 048
     Dates: start: 20080501

REACTIONS (7)
  - LICHEN PLANUS [None]
  - LICHENOID KERATOSIS [None]
  - PRURITUS [None]
  - RASH [None]
  - SKIN EROSION [None]
  - VULVOVAGINAL DRYNESS [None]
  - VULVOVAGINAL MYCOTIC INFECTION [None]
